FAERS Safety Report 25569209 (Version 1)
Quarter: 2025Q3

REPORT INFORMATION
  Report Type: Spontaneous
  Country: IN (occurrence: IN)
  Receive Date: 20250716
  Receipt Date: 20250716
  Transmission Date: 20251021
  Serious: Yes (Life-Threatening, Other)
  Sender: PFIZER
  Company Number: IN-PFIZER INC-PV202500083221

PATIENT
  Age: 9 Day
  Sex: Male

DRUGS (3)
  1. MEROPENEM [Suspect]
     Active Substance: MEROPENEM
     Indication: Brain abscess
  2. CEFOTAXIME [Suspect]
     Active Substance: CEFOTAXIME SODIUM
     Indication: Brain abscess
  3. AMIKACIN [Suspect]
     Active Substance: AMIKACIN
     Indication: Brain abscess

REACTIONS (2)
  - Drug ineffective [Unknown]
  - Off label use [Unknown]
